FAERS Safety Report 7490242-3 (Version None)
Quarter: 2011Q2

REPORT INFORMATION
  Report Type: 
  Country: None (occurrence: None)
  Receive Date: 20110519
  Receipt Date: 20110516
  Transmission Date: 20111010
  Serious: No
  Sender: FDA-Public Use
  Company Number: US-PFIZER INC-2011105098

PATIENT
  Sex: Female
  Weight: 68.027 kg

DRUGS (11)
  1. ADVIL LIQUI-GELS [Suspect]
     Indication: BACK DISORDER
     Dosage: 400 MG, 2X/DAY
     Route: 048
     Dates: start: 20110401, end: 20110515
  2. SYNTHROID [Concomitant]
     Indication: THYROID DISORDER
     Dosage: 100 UG, UNK
     Route: 048
  3. TYLENOL EXTRA-STRENGTH [Concomitant]
     Indication: MUSCULOSKELETAL DISCOMFORT
  4. ACETYLSALICYLIC ACID SRT [Suspect]
     Dosage: UNK
     Route: 048
  5. ADVIL LIQUI-GELS [Suspect]
     Indication: MUSCULOSKELETAL DISCOMFORT
  6. TRIAMTERENE AND HYDROCHLOROTHIAZIDE [Concomitant]
     Indication: HYPERTENSION
     Dosage: 75/50 MG
     Route: 048
  7. TRIAMTERENE AND HYDROCHLOROTHIAZIDE [Concomitant]
     Indication: FLUID RETENTION
  8. TYLENOL EXTRA-STRENGTH [Concomitant]
     Indication: BACK DISORDER
     Dosage: UNK
     Route: 048
     Dates: end: 20110101
  9. CENTRUM SILVER [Concomitant]
     Dosage: UNK
     Route: 048
  10. LISINOPRIL [Concomitant]
     Indication: HYPERTENSION
     Dosage: 5 MG, UNK
     Route: 048
  11. VITAMIN D [Concomitant]
     Dosage: UNK
     Route: 048

REACTIONS (4)
  - BURNING SENSATION [None]
  - TINNITUS [None]
  - RASH MACULAR [None]
  - PRURITUS [None]
